FAERS Safety Report 15333644 (Version 3)
Quarter: 2019Q2

REPORT INFORMATION
  Report Type: Spontaneous
  Country: AU (occurrence: AU)
  Receive Date: 20180830
  Receipt Date: 20190514
  Transmission Date: 20190711
  Serious: Yes (Hospitalization)
  Sender: FDA-Public Use
  Company Number: AU-MYLANLABS-2018M1064169

PATIENT
  Age: 46 Year
  Sex: Male

DRUGS (4)
  1. CLOZARIL [Suspect]
     Active Substance: CLOZAPINE
     Dosage: 250 MG, UNK
     Route: 048
  2. CLOZARIL [Suspect]
     Active Substance: CLOZAPINE
     Indication: SCHIZOPHRENIA
     Dosage: 250 MILLIGRAM
     Route: 048
     Dates: start: 20110328
  3. CLOZARIL [Suspect]
     Active Substance: CLOZAPINE
     Dosage: 200 MG, QD
     Route: 048
     Dates: start: 2018
  4. CLOZARIL [Suspect]
     Active Substance: CLOZAPINE
     Dosage: 500 MG, UNK
     Route: 048

REACTIONS (3)
  - Intentional product use issue [Unknown]
  - Hospitalisation [Unknown]
  - Respiratory disorder [Unknown]

NARRATIVE: CASE EVENT DATE: 2018
